FAERS Safety Report 15178061 (Version 1)
Quarter: 2018Q3

REPORT INFORMATION
  Report Type: Spontaneous
  Country: US (occurrence: US)
  Receive Date: 20180721
  Receipt Date: 20180721
  Transmission Date: 20181010
  Serious: No
  Sender: FDA-Public Use
  Company Number: US-JNJFOC-20180708834

PATIENT
  Age: 69 Year
  Sex: Female
  Weight: 64.86 kg

DRUGS (1)
  1. XARELTO [Suspect]
     Active Substance: RIVAROXABAN
     Indication: THROMBOSIS
     Route: 048
     Dates: start: 20180517

REACTIONS (2)
  - Drug dose omission [Unknown]
  - Malaise [Unknown]

NARRATIVE: CASE EVENT DATE: 20180705
